FAERS Safety Report 17082849 (Version 4)
Quarter: 2019Q4

REPORT INFORMATION
  Report Type: Spontaneous
  Country: US (occurrence: US)
  Receive Date: 20191127
  Receipt Date: 20191205
  Transmission Date: 20200122
  Serious: Yes (Life-Threatening, Hospitalization, Other)
  Sender: FDA-Public Use
  Company Number: US-PFIZER INC-2019511168

PATIENT
  Age: 20 Year
  Sex: Female

DRUGS (18)
  1. INFLIXIMAB [Suspect]
     Active Substance: INFLIXIMAB
     Indication: TRANSPLANT REJECTION
     Dosage: 5 MG/KG, CYCLIC (SINGLE DOSES OF INFLIXIMAB)
  2. INFLIXIMAB [Suspect]
     Active Substance: INFLIXIMAB
     Dosage: 10 MG/KG, UNK (INFUSIONS), (PLAN TO REPEAT THIS EVERY 4 TO 6 WEEKS)
  3. TACROLIMUS. [Suspect]
     Active Substance: TACROLIMUS
     Dosage: UNK (INCREASED)
  4. PREDNISONE. [Suspect]
     Active Substance: PREDNISONE
     Dosage: 4 MG/KG, DAILY
     Route: 042
  5. PREDNISONE. [Suspect]
     Active Substance: PREDNISONE
     Dosage: 2 MG/KG, DAILY
     Route: 042
  6. TACROLIMUS. [Suspect]
     Active Substance: TACROLIMUS
     Dosage: UNK (REDUCED WITH TARGET TACROLIMUS TROUGHS OF 4 TO 5 NG/ML)
  7. ANTITHYMOCYTE IMMUNOGLOBULIN [Suspect]
     Active Substance: THYMOCYTE IMMUNE GLOBULIN NOS
     Indication: TRANSPLANT REJECTION
     Dosage: 1 MG/KG/DOSE (INFUSION)
     Dates: start: 2017
  8. SIROLIMUS. [Suspect]
     Active Substance: SIROLIMUS
     Indication: TRANSPLANT REJECTION
     Dosage: UNK
     Dates: start: 2017
  9. PREDNISONE. [Suspect]
     Active Substance: PREDNISONE
     Dosage: 1 MG/KG, DAILY
     Route: 042
  10. PREDNISONE. [Suspect]
     Active Substance: PREDNISONE
     Indication: TRANSPLANT REJECTION
     Dosage: 5 MG/KG, DAILY  (ONCE DAILY)
     Route: 042
  11. PREDNISONE. [Suspect]
     Active Substance: PREDNISONE
     Dosage: 3 MG/KG, DAILY
     Route: 042
  12. PREDNISONE. [Suspect]
     Active Substance: PREDNISONE
     Indication: IMMUNOSUPPRESSANT DRUG THERAPY
     Dosage: 10MG/KG, DAILY
     Route: 042
  13. TACROLIMUS. [Suspect]
     Active Substance: TACROLIMUS
     Indication: TRANSPLANT REJECTION
     Dosage: UNK
     Dates: start: 2004
  14. TACROLIMUS. [Suspect]
     Active Substance: TACROLIMUS
     Indication: IMMUNOSUPPRESSANT DRUG THERAPY
     Dosage: UNK (ADJUSTMENT OF TACROLIMUS DOSE TO TARGET TROUGH LEVELS BETWEEN  10 AND 15 NG/ML)
     Dates: start: 2017
  15. TACROLIMUS. [Suspect]
     Active Substance: TACROLIMUS
     Dosage: 1 MG, 2X/DAY (EVERY 12 HOURS)
     Dates: end: 2017
  16. ANTITHYMOCYTE IMMUNOGLOBULIN [Suspect]
     Active Substance: THYMOCYTE IMMUNE GLOBULIN NOS
     Dosage: 2 MG/KG, 1X/DAY (INFUSION)
     Dates: start: 2017
  17. INFLIXIMAB [Suspect]
     Active Substance: INFLIXIMAB
     Dosage: 5 MG/KG, CYCLIC (SINGLE INFUSION)
     Dates: start: 2017
  18. PREDNISONE. [Suspect]
     Active Substance: PREDNISONE
     Dosage: UNK
     Route: 048

REACTIONS (6)
  - Bacterial translocation [Recovered/Resolved]
  - Septic shock [Recovered/Resolved]
  - Epstein-Barr virus infection [Recovered/Resolved]
  - Enterovirus infection [Unknown]
  - Epstein-Barr virus associated lymphoproliferative disorder [Recovered/Resolved]
  - Rhinovirus infection [Unknown]

NARRATIVE: CASE EVENT DATE: 2017
